FAERS Safety Report 4398407-4 (Version None)
Quarter: 2004Q3

REPORT INFORMATION
  Report Type: 
  Country: None (occurrence: None)
  Receive Date: 20040712
  Receipt Date: 20040630
  Transmission Date: 20050211
  Serious: Yes (Hospitalization, Other)
  Sender: FDA-Public Use
  Company Number: 2004043930

PATIENT
  Age: 62 Year
  Sex: Female

DRUGS (9)
  1. ATARAX [Suspect]
     Indication: ILL-DEFINED DISORDER
     Dosage: 50 MG (DAILY), ORAL
     Route: 048
     Dates: start: 20040423, end: 20040503
  2. MEPERIDINE W/PROMETHAZINE (PETHIDINE, PROMETHAZINE) [Suspect]
     Indication: ILL-DEFINED DISORDER
     Dosage: 1.5 DF 1/D (DAILY), ORAL
     Route: 048
     Dates: start: 20040423
  3. VENLAFAXINE HCL [Suspect]
     Indication: ILL-DEFINED DISORDER
     Dosage: 150 MG/200 MG/150 MG (DAILY), ORAL
     Route: 048
     Dates: start: 20040423, end: 20040505
  4. CYAMEMAZINE (CYAMEMAZINE) [Suspect]
     Indication: ILL-DEFINED DISORDER
     Dosage: 75 MG/62.5 MG/25 MG (DAILY), ORAL
     Route: 048
     Dates: start: 20040423, end: 20040505
  5. CLORAZEPATE DIPOTASSIUM [Concomitant]
     Indication: ILL-DEFINED DISORDER
     Dosage: 60MG/30 MG/50 MG/60 MG (DAILY), ORAL
     Route: 048
     Dates: start: 20040423
  6. APOREX (DEXTROPROPOXYPHENE HYDROCHLORIDE, PARACETAMOL) [Suspect]
     Indication: BACK PAIN
     Dosage: 2 DF 3/D (DAILY), ORAL
     Route: 048
     Dates: start: 20040430, end: 20040504
  7. PIROXICAM [Concomitant]
  8. OMEPRAZOLE [Concomitant]
  9. PARACETAMOL  (PARACETAMOL) [Concomitant]

REACTIONS (5)
  - BLOOD AMYLASE INCREASED [None]
  - BLOOD TRIGLYCERIDES INCREASED [None]
  - CONDITION AGGRAVATED [None]
  - HEPATIC ENZYME INCREASED [None]
  - LIPASE INCREASED [None]
